FAERS Safety Report 9436740 (Version 1)
Quarter: 2013Q3

REPORT INFORMATION
  Report Type: Spontaneous
  Country: US (occurrence: US)
  Receive Date: 20130802
  Receipt Date: 20130802
  Transmission Date: 20140515
  Serious: Yes (Hospitalization, Other)
  Sender: FDA-Public Use
  Company Number: US-BAYER-2013-091626

PATIENT
  Age: 17 Year
  Sex: Female

DRUGS (9)
  1. YAZ [Suspect]
  2. YASMIN [Suspect]
  3. METFORMIN ER [Concomitant]
     Dosage: UNK
     Dates: start: 20090322
  4. PREVACID [Concomitant]
     Dosage: UNK
     Dates: start: 20090416, end: 20090520
  5. ENALAPRIL [Concomitant]
     Dosage: UNK
     Dates: start: 20090302
  6. LAMOTRIGINE [Concomitant]
     Dosage: UNK
     Dates: start: 20090409
  7. SINGULAIR [Concomitant]
     Dosage: UNK
     Dates: start: 20090409
  8. AMITRIPTYLINE [Concomitant]
     Dosage: UNK
     Dates: start: 20090320
  9. LAMOTRIGINE [Concomitant]
     Dosage: UNK
     Dates: start: 20090305

REACTIONS (2)
  - Pulmonary embolism [None]
  - Cholelithiasis [None]
